FAERS Safety Report 8262313-5 (Version None)
Quarter: 2012Q2

REPORT INFORMATION
  Report Type: 
  Country: None (occurrence: None)
  Receive Date: 20120405
  Receipt Date: 20120327
  Transmission Date: 20120825
  Serious: Yes (Hospitalization, Other)
  Sender: FDA-Public Use
  Company Number: FR-JNJFOC-20120402160

PATIENT
  Age: 40 Year
  Sex: Female

DRUGS (4)
  1. ACETAMINOPHEN AND TRAMADOL HCL [Suspect]
     Indication: MYALGIA
     Route: 048
  2. ACETAMINOPHEN AND TRAMADOL HCL [Suspect]
     Indication: ARTHRALGIA
     Route: 048
  3. ACETAMINOPHEN AND TRAMADOL HCL [Suspect]
     Route: 048
     Dates: start: 20120101, end: 20120322
  4. ACETAMINOPHEN AND TRAMADOL HCL [Suspect]
     Route: 048
     Dates: start: 20120101, end: 20120322

REACTIONS (9)
  - SUPRAVENTRICULAR TACHYCARDIA [None]
  - CHEST DISCOMFORT [None]
  - DELIRIUM [None]
  - PANIC ATTACK [None]
  - TACHYPNOEA [None]
  - HEADACHE [None]
  - DYSKINESIA [None]
  - HALLUCINATION [None]
  - UNEVALUABLE EVENT [None]
